FAERS Safety Report 13239431 (Version 2)
Quarter: 2017Q1

REPORT INFORMATION
  Report Type: Spontaneous
  Country: FR (occurrence: FR)
  Receive Date: 20170216
  Receipt Date: 20170220
  Transmission Date: 20170428
  Serious: Yes (Hospitalization, Other)
  Sender: FDA-Public Use
  Company Number: FR-ELI_LILLY_AND_COMPANY-FR201702001916

PATIENT
  Age: 24 Year
  Sex: Male

DRUGS (4)
  1. ZYPREXA [Suspect]
     Active Substance: OLANZAPINE
     Indication: BRIEF PSYCHOTIC DISORDER WITH MARKED STRESSORS
     Dosage: 1 DF, QD
     Route: 048
     Dates: start: 20160810, end: 20161024
  2. VALIUM [Interacting]
     Active Substance: DIAZEPAM
     Indication: PSYCHIATRIC DECOMPENSATION
     Dosage: 2 DF, UNKNOWN
     Route: 048
     Dates: start: 20160812, end: 20160812
  3. LOXAPAC                            /00401801/ [Interacting]
     Active Substance: LOXAPINE SUCCINATE
     Indication: BRIEF PSYCHOTIC DISORDER WITH MARKED STRESSORS
     Dosage: 1 DF, UNKNOWN
     Route: 048
     Dates: start: 20160817, end: 20160817
  4. TERCIAN                            /00759301/ [Suspect]
     Active Substance: CYAMEMAZINE
     Indication: BRIEF PSYCHOTIC DISORDER WITH MARKED STRESSORS
     Dosage: UNK, UNKNOWN
     Route: 048
     Dates: start: 20160810, end: 20161024

REACTIONS (6)
  - Coma [Recovered/Resolved]
  - Confusional state [Recovered/Resolved]
  - Drug interaction [Recovered/Resolved]
  - Drug interaction [Recovered/Resolved]
  - Aphasia [Recovered/Resolved]
  - Catatonia [Recovered/Resolved]

NARRATIVE: CASE EVENT DATE: 20160812
